FAERS Safety Report 9172580 (Version 1)
Quarter: 2012Q4

REPORT INFORMATION
  Report Type: 
  Country: US (occurrence: US)
  Receive Date: 20120911
  Receipt Date: 20120911
  Transmission Date: 20130627
  Serious: Yes (Other)
  Sender: FDA-Public Use
  Company Number: US-ROCHE-1100889

PATIENT
  Age: 58 Year
  Sex: Male

DRUGS (5)
  1. ACTIVASE [Suspect]
     Indication: ACUTE MYOCARDIAL INFARCTION
     Route: 065
  2. HEPARIN [Concomitant]
  3. METOPROLOL TARTRATE [Concomitant]
  4. ASPIRIN [Concomitant]
  5. UROKINASE [Concomitant]

REACTIONS (5)
  - Accelerated idioventricular rhythm [Unknown]
  - Gastrointestinal haemorrhage [Unknown]
  - Chest pain [Unknown]
  - Haematocrit decreased [Unknown]
  - Bundle branch block right [Unknown]
